FAERS Safety Report 13273639 (Version 1)
Quarter: 2017Q1

REPORT INFORMATION
  Report Type: Spontaneous
  Country: DK (occurrence: DK)
  Receive Date: 20170227
  Receipt Date: 20170227
  Transmission Date: 20170428
  Serious: Yes (Hospitalization)
  Sender: FDA-Public Use
  Company Number: DK-TEVA-741373ACC

PATIENT
  Age: 97 Year
  Sex: Female

DRUGS (13)
  1. BRICANYL [Concomitant]
     Active Substance: TERBUTALINE SULFATE
     Indication: PRODUCT USED FOR UNKNOWN INDICATION
  2. PREDNISOLON ^ACTAVIS^ [Concomitant]
     Indication: PRODUCT USED FOR UNKNOWN INDICATION
  3. LOSARTANKALIUM/HYDROCHLORTHIAZID ^TEVA^ [Suspect]
     Active Substance: HYDROCHLOROTHIAZIDE\LOSARTAN POTASSIUM
     Indication: HYPERTENSION
     Dosage: 1 DOSAGE FORMS DAILY;
     Route: 048
     Dates: end: 20170127
  4. BISOPROLOL ^ACTAVIS^ [Concomitant]
     Indication: CARDIAC FAILURE
  5. PINEX [Concomitant]
     Active Substance: ACETAMINOPHEN
     Indication: PRODUCT USED FOR UNKNOWN INDICATION
  6. SEREVENT DISKUS [Concomitant]
     Active Substance: SALMETEROL XINAFOATE
     Indication: PRODUCT USED FOR UNKNOWN INDICATION
  7. CENTYL MED KALIUMKLORID [Suspect]
     Active Substance: BENDROFLUMETHIAZIDE\POTASSIUM CHLORIDE
     Indication: DIURETIC THERAPY
     Dosage: 1 DOSAGE FORMS DAILY;
     Route: 048
     Dates: end: 20170127
  8. ESCITALOPRAM ^STADA^ [Concomitant]
     Indication: PRODUCT USED FOR UNKNOWN INDICATION
  9. MONTELUKAST ^SANDOZ^ [Concomitant]
     Indication: PRODUCT USED FOR UNKNOWN INDICATION
  10. PERILAX [Concomitant]
     Indication: PRODUCT USED FOR UNKNOWN INDICATION
  11. XARELTO [Concomitant]
     Active Substance: RIVAROXABAN
     Indication: ATRIAL FIBRILLATION
  12. SPIROCORT TURBUHALER [Concomitant]
     Indication: ASTHMA
  13. IBUMETIN [Suspect]
     Active Substance: IBUPROFEN
     Indication: PAIN
     Dosage: 1200 MILLIGRAM DAILY;
     Route: 048
     Dates: end: 20170127

REACTIONS (6)
  - Hyponatraemia [Not Recovered/Not Resolved]
  - Renal impairment [Recovered/Resolved]
  - Upper limb fracture [None]
  - Fracture [Unknown]
  - Orthostatic hypotension [Unknown]
  - Fall [Recovered/Resolved]

NARRATIVE: CASE EVENT DATE: 20170127
